FAERS Safety Report 21571747 (Version 1)
Quarter: 2022Q4

REPORT INFORMATION
  Report Type: Report from Study
  Country: HU (occurrence: HU)
  Receive Date: 20221109
  Receipt Date: 20221109
  Transmission Date: 20230112
  Serious: Yes (Other)
  Sender: FDA-Public Use
  Company Number: HU-MYLANLABS-2022M1122521

PATIENT
  Age: 40 Year
  Sex: Female

DRUGS (6)
  1. ZONISAMIDE [Suspect]
     Active Substance: ZONISAMIDE
     Indication: Temporal lobe epilepsy
     Dosage: UNK
     Route: 065
  2. ZONISAMIDE [Suspect]
     Active Substance: ZONISAMIDE
     Indication: Seizure
  3. TOPIRAMATE [Suspect]
     Active Substance: TOPIRAMATE
     Indication: Temporal lobe epilepsy
     Dosage: UNK
     Route: 065
  4. TOPIRAMATE [Suspect]
     Active Substance: TOPIRAMATE
     Indication: Seizure
  5. CARBAMAZEPINE [Suspect]
     Active Substance: CARBAMAZEPINE
     Indication: Temporal lobe epilepsy
     Dosage: UNK
     Route: 065
  6. CARBAMAZEPINE [Suspect]
     Active Substance: CARBAMAZEPINE
     Indication: Seizure

REACTIONS (1)
  - Drug ineffective [Unknown]
